FAERS Safety Report 9850911 (Version 1)
Quarter: 2014Q1

REPORT INFORMATION
  Report Type: Spontaneous
  Country: US (occurrence: None)
  Receive Date: 20140124
  Receipt Date: 20140124
  Transmission Date: 20141002
  Serious: Yes (Death)
  Sender: FDA-Public Use
  Company Number: 2014AP000398

PATIENT
  Age: 50 Year
  Sex: Female

DRUGS (8)
  1. TRAMADOL HYDROCHLORIDE TABLETS [Suspect]
  2. CARBAMAZEPINE [Suspect]
  3. QUETIAPINE FUMARATE [Suspect]
  4. MORPHINE [Suspect]
  5. CYCLOBENZAPRINE [Suspect]
  6. DIPHENHYDRAMINE [Suspect]
  7. METOCLOPRAMIDE [Suspect]
  8. DIAZEPAM [Suspect]

REACTIONS (1)
  - Drug abuse [None]
